FAERS Safety Report 7832382-2 (Version None)
Quarter: 2011Q4

REPORT INFORMATION
  Report Type: 
  Country: None (occurrence: None)
  Receive Date: 20111022
  Receipt Date: 20111007
  Transmission Date: 20120403
  Serious: Yes (Hospitalization)
  Sender: FDA-Public Use
  Company Number: US-BAYER-2011-003055

PATIENT
  Age: 16 Year
  Sex: Female
  Weight: 95.238 kg

DRUGS (5)
  1. YASMIN [Suspect]
     Indication: POLYCYSTIC OVARIES
     Dosage: UNK
     Dates: start: 20061101, end: 20061201
  2. PHENERGAN HCL [Concomitant]
  3. SPIRONOLACTONE [Concomitant]
     Indication: POLYCYSTIC OVARIES
     Dosage: UNK
     Dates: start: 20061101
  4. YASMIN [Suspect]
     Indication: PREMENSTRUAL SYNDROME
  5. METFORMIN HCL [Concomitant]
     Indication: POLYCYSTIC OVARIES
     Dosage: UNK
     Dates: start: 20060101

REACTIONS (5)
  - NAUSEA [None]
  - DEEP VEIN THROMBOSIS [None]
  - PAIN IN EXTREMITY [None]
  - OEDEMA [None]
  - PAIN [None]
